FAERS Safety Report 14794427 (Version 2)
Quarter: 2018Q2

REPORT INFORMATION
  Report Type: Spontaneous
  Country: FR (occurrence: FR)
  Receive Date: 20180423
  Receipt Date: 20180516
  Transmission Date: 20180711
  Serious: Yes (Other)
  Sender: FDA-Public Use
  Company Number: FR-009507513-1804FRA008361

PATIENT
  Age: 71 Year
  Sex: Male

DRUGS (1)
  1. AERIUS [Suspect]
     Active Substance: DESLORATADINE
     Dosage: WHEN NEEDED
     Route: 048
     Dates: start: 2003

REACTIONS (1)
  - Cerebrovascular accident [Unknown]

NARRATIVE: CASE EVENT DATE: 201710
